FAERS Safety Report 7449831-4 (Version None)
Quarter: 2011Q2

REPORT INFORMATION
  Report Type: 
  Country: None (occurrence: None)
  Receive Date: 20110421
  Receipt Date: 20110420
  Transmission Date: 20111010
  Serious: No
  Sender: FDA-Public Use
  Company Number: C-11-012

PATIENT

DRUGS (2)
  1. OXYCODONE HYDROCHLORIDE [Suspect]
     Dosage: ORAL
     Route: 048
  2. OXYCODONE HYDROCHLORIDE [Suspect]
     Dosage: EVERY 4 TO 6 HOURS

REACTIONS (2)
  - NAUSEA [None]
  - HEADACHE [None]
